FAERS Safety Report 5205585-3 (Version None)
Quarter: 2006Q4

REPORT INFORMATION
  Report Type: 
  Country: None (occurrence: None)
  Receive Date: 20061027
  Receipt Date: 20060906
  Transmission Date: 20070319
  Serious: No
  Sender: FDA-Public Use
  Company Number: POMP-10822

PATIENT
  Age: 52 Year
  Sex: Female
  Weight: 61.2356 kg

DRUGS (1)
  1. MYOZYME [Suspect]
     Indication: GLYCOGEN STORAGE DISEASE TYPE II
     Dates: start: 20060531

REACTIONS (1)
  - POSTMENOPAUSAL HAEMORRHAGE [None]
